FAERS Safety Report 8499360-4 (Version None)
Quarter: 2012Q3

REPORT INFORMATION
  Report Type: 
  Country: None (occurrence: None)
  Receive Date: 20120710
  Receipt Date: 20120628
  Transmission Date: 20120928
  Serious: No
  Sender: FDA-Public Use
  Company Number: US-JNJFOC-20120700694

PATIENT
  Sex: Male
  Weight: 78.47 kg

DRUGS (3)
  1. MORPHINE [Concomitant]
     Indication: PAIN
     Route: 065
  2. FENTANYL [Suspect]
     Indication: BACK PAIN
     Route: 062
     Dates: start: 20120601
  3. OXYCODONE HCL [Concomitant]
     Indication: BREAKTHROUGH PAIN
     Route: 065

REACTIONS (3)
  - THERAPEUTIC RESPONSE DECREASED [None]
  - WRONG TECHNIQUE IN DRUG USAGE PROCESS [None]
  - PRODUCT QUALITY ISSUE [None]
